FAERS Safety Report 5389502-1 (Version None)
Quarter: 2007Q3

REPORT INFORMATION
  Report Type: 
  Country: None (occurrence: None)
  Receive Date: 20070717
  Receipt Date: 20070705
  Transmission Date: 20080115
  Serious: Yes (Other)
  Sender: FDA-Public Use
  Company Number: GB-PFIZER INC-2007055727

PATIENT
  Age: 50 Year
  Sex: Male

DRUGS (1)
  1. EPANUTIN [Suspect]
     Indication: EPILEPSY
     Route: 048

REACTIONS (2)
  - PALMAR ERYTHEMA [None]
  - TOOTH DISORDER [None]
